FAERS Safety Report 5072216-5 (Version None)
Quarter: 2006Q3

REPORT INFORMATION
  Report Type: 
  Country: None (occurrence: None)
  Receive Date: 20060801
  Receipt Date: 20060711
  Transmission Date: 20061208
  Serious: Yes (Hospitalization)
  Sender: FDA-Public Use
  Company Number: WAES 0607USA01763

PATIENT
  Age: 52 Year
  Sex: Male

DRUGS (4)
  1. DECADRON [Suspect]
     Indication: GLIOBLASTOMA MULTIFORME
     Dosage: 4 MG Q6H PO
     Route: 048
     Dates: start: 20050812, end: 20050816
  2. AMBIEN [Concomitant]
  3. ATIVAN [Concomitant]
  4. KEPPRA [Concomitant]

REACTIONS (32)
  - ABNORMAL BEHAVIOUR [None]
  - AGGRESSION [None]
  - ANGER [None]
  - APHASIA [None]
  - ASTHENIA [None]
  - CALCINOSIS [None]
  - CATATONIA [None]
  - CEREBRAL DISORDER [None]
  - CONVULSION [None]
  - DISORIENTATION [None]
  - EUPHORIC MOOD [None]
  - EXCESSIVE EYE BLINKING [None]
  - FACIAL PARESIS [None]
  - FATIGUE [None]
  - GERSTMANN'S SYNDROME [None]
  - GLIOSIS [None]
  - HEMIPARESIS [None]
  - LETHARGY [None]
  - LOSS OF CONSCIOUSNESS [None]
  - MEMORY IMPAIRMENT [None]
  - MOANING [None]
  - MOOD ALTERED [None]
  - NECROSIS [None]
  - NEOPLASM PROGRESSION [None]
  - NUCLEAR MAGNETIC RESONANCE IMAGING BRAIN ABNORMAL [None]
  - PSYCHOTIC DISORDER [None]
  - RADIATION INJURY [None]
  - SPEECH DISORDER [None]
  - STARING [None]
  - TANGENTIALITY [None]
  - TREATMENT NONCOMPLIANCE [None]
  - UNRESPONSIVE TO STIMULI [None]
